FAERS Safety Report 18595166 (Version 1)
Quarter: 2020Q4

REPORT INFORMATION
  Report Type: Spontaneous
  Country: US (occurrence: US)
  Receive Date: 20201209
  Receipt Date: 20201209
  Transmission Date: 20210114
  Serious: Yes (Hospitalization)
  Sender: FDA-Public Use
  Company Number: None

PATIENT
  Age: 76 Year
  Sex: Male

DRUGS (5)
  1. METOPROLOL ER [Concomitant]
     Active Substance: METOPROLOL SUCCINATE
  2. BAMLANIVIMAB. [Suspect]
     Active Substance: BAMLANIVIMAB
     Indication: SARS-COV-2 TEST POSITIVE
     Dosage: ?          OTHER FREQUENCY:ONCE;?
     Route: 041
     Dates: start: 20201206, end: 20201206
  3. DILTIAZEM. [Concomitant]
     Active Substance: DILTIAZEM
  4. TAMSULOSIN [Concomitant]
     Active Substance: TAMSULOSIN
  5. APIXABAN [Concomitant]
     Active Substance: APIXABAN

REACTIONS (4)
  - Drug hypersensitivity [None]
  - Oxygen saturation decreased [None]
  - Confusional state [None]
  - COVID-19 [None]

NARRATIVE: CASE EVENT DATE: 20201206
